FAERS Safety Report 20757702 (Version 1)
Quarter: 2022Q2

REPORT INFORMATION
  Report Type: Spontaneous
  Country: US (occurrence: None)
  Receive Date: 20220427
  Receipt Date: 20220427
  Transmission Date: 20220721
  Serious: Yes (Life-Threatening, Disabling)
  Sender: FDA-Public Use
  Company Number: None

PATIENT
  Sex: Female
  Weight: 113.4 kg

DRUGS (1)
  1. MIRENA [Suspect]
     Active Substance: LEVONORGESTREL

REACTIONS (7)
  - Idiopathic intracranial hypertension [None]
  - Papilloedema [None]
  - Eye pain [None]
  - Weight increased [None]
  - Arthropathy [None]
  - Muscular weakness [None]
  - Fatigue [None]
